FAERS Safety Report 22344085 (Version 1)
Quarter: 2023Q2

REPORT INFORMATION
  Report Type: Spontaneous
  Country: US (occurrence: None)
  Receive Date: 20230518
  Receipt Date: 20230518
  Transmission Date: 20230721
  Serious: Yes (Life-Threatening, Other)
  Sender: FDA-Public Use
  Company Number: None

PATIENT
  Age: 30 Year
  Sex: Female
  Weight: 90 kg

DRUGS (5)
  1. VIIBRYD [Suspect]
     Active Substance: VILAZODONE HYDROCHLORIDE
     Indication: Major depression
     Dates: start: 20230412, end: 20230503
  2. Birth control [Concomitant]
  3. AMITRIPTYLINE [Concomitant]
  4. TRAZODONE [Concomitant]
  5. ATENOLOL [Concomitant]
     Active Substance: ATENOLOL

REACTIONS (2)
  - Psychotic disorder [None]
  - Suicidal behaviour [None]

NARRATIVE: CASE EVENT DATE: 20230429
